FAERS Safety Report 8288734-2 (Version None)
Quarter: 2012Q2

REPORT INFORMATION
  Report Type: 
  Country: None (occurrence: None)
  Receive Date: 20120417
  Receipt Date: 20120405
  Transmission Date: 20120825
  Serious: No
  Sender: FDA-Public Use
  Company Number: US-BIOGENIDEC-2012BI011944

PATIENT
  Sex: Female

DRUGS (3)
  1. AVONEX [Concomitant]
     Indication: MULTIPLE SCLEROSIS
     Route: 030
     Dates: start: 20020618, end: 20070502
  2. TYSABRI [Suspect]
     Indication: MULTIPLE SCLEROSIS
     Route: 042
     Dates: start: 20070607, end: 20111128
  3. AVONEX [Concomitant]
     Route: 030
     Dates: start: 20120306

REACTIONS (5)
  - MALAISE [None]
  - PNEUMONIA [None]
  - FATIGUE [None]
  - SYNCOPE [None]
  - INFLUENZA [None]
